FAERS Safety Report 8607285-6 (Version None)
Quarter: 2012Q3

REPORT INFORMATION
  Report Type: 
  Country: None (occurrence: None)
  Receive Date: 20120807
  Receipt Date: 20120723
  Transmission Date: 20120928
  Serious: Yes (Death)
  Sender: FDA-Public Use
  Company Number: 2012CP000088

PATIENT
  Age: 62 Year
  Sex: Female

DRUGS (10)
  1. LEVOTHYROXINE SODIUM [Concomitant]
  2. VALSARTAN  AND HYDROCHLOROTHIAZIDE [Concomitant]
  3. ACETAMINOPHEN [Suspect]
     Dosage: 1000 MG;3/1 DAY;PO
     Route: 048
     Dates: start: 20120101, end: 20120314
  4. KETOPROFEN [Suspect]
  5. NEBIVOLOL HCL [Concomitant]
  6. ZOPICLONE [Concomitant]
  7. CIPROFLOXACIN HCL [Suspect]
     Dates: start: 20120314
  8. ULORIC [Concomitant]
  9. ACETAMINOPHEN [Suspect]
     Dosage: 4 GRAM;QD;IV
     Route: 042
     Dates: start: 20120314, end: 20120315
  10. CEFOTAXIME SODIUM [Suspect]
     Dates: start: 20120314

REACTIONS (5)
  - PANCREATITIS ACUTE [None]
  - POST PROCEDURAL COMPLICATION [None]
  - DIARRHOEA [None]
  - HEPATITIS FULMINANT [None]
  - GENERAL PHYSICAL HEALTH DETERIORATION [None]
